FAERS Safety Report 5872796-3 (Version None)
Quarter: 2008Q3

REPORT INFORMATION
  Report Type: 
  Country: None (occurrence: None)
  Receive Date: 20080903
  Receipt Date: 20080818
  Transmission Date: 20090109
  Serious: Yes (Other)
  Sender: FDA-Public Use
  Company Number: DSA_62248_2008

PATIENT
  Age: 59 Year
  Sex: Female
  Weight: 112.4921 kg

DRUGS (8)
  1. MYSOLINE [Suspect]
     Indication: EPILEPSY
     Dosage: (250 MG TID ORAL), (250 MG TID ORAL)
     Route: 048
     Dates: start: 19630101, end: 20080701
  2. MYSOLINE [Suspect]
     Indication: EPILEPSY
     Dosage: (250 MG TID ORAL), (250 MG TID ORAL)
     Route: 048
     Dates: start: 20080701
  3. LEVOTHYROXINE SODIUM [Concomitant]
  4. GLYBURIDE [Concomitant]
  5. METFORMIN HCL [Concomitant]
  6. ACTOS [Concomitant]
  7. VYTORIN [Concomitant]
  8. LASIX [Concomitant]

REACTIONS (7)
  - ASTHENIA [None]
  - BLOOD GLUCOSE INCREASED [None]
  - CONVULSION [None]
  - DRUG INEFFECTIVE [None]
  - FALL [None]
  - FATIGUE [None]
  - WEIGHT DECREASED [None]
